FAERS Safety Report 18083319 (Version 2)
Quarter: 2020Q4

REPORT INFORMATION
  Report Type: Other
  Country: IT (occurrence: IT)
  Receive Date: 20200728
  Receipt Date: 20201118
  Transmission Date: 20210113
  Serious: Yes (Other)
  Sender: FDA-Public Use
  Company Number: IT-ROCHE-2643710

PATIENT

DRUGS (1)
  1. TOCILIZUMAB. [Suspect]
     Active Substance: TOCILIZUMAB
     Indication: COVID-19
     Route: 042

REACTIONS (6)
  - Sepsis [Unknown]
  - Off label use [Unknown]
  - Intentional product use issue [Unknown]
  - Systemic candida [Unknown]
  - Extradural abscess [Unknown]
  - Lung abscess [Unknown]
